FAERS Safety Report 8991297 (Version 1)
Quarter: 2012Q4

REPORT INFORMATION
  Report Type: 
  Country: US (occurrence: US)
  Receive Date: 20121231
  Receipt Date: 20121231
  Transmission Date: 20130627
  Serious: Yes (Other)
  Sender: FDA-Public Use
  Company Number: US-ROCHE-1078910

PATIENT
  Age: 21 Year
  Sex: Male
  Weight: 108.96 kg

DRUGS (1)
  1. ACCUTANE [Suspect]
     Indication: ACNE
     Route: 048
     Dates: start: 20000602, end: 20000915

REACTIONS (4)
  - Colitis ulcerative [Unknown]
  - Depression [Unknown]
  - Cholangitis sclerosing [Unknown]
  - Suicidal ideation [Unknown]
